FAERS Safety Report 19106140 (Version 1)
Quarter: 2021Q2

REPORT INFORMATION
  Report Type: Spontaneous
  Country: CA (occurrence: CA)
  Receive Date: 20210408
  Receipt Date: 20210408
  Transmission Date: 20210717
  Serious: Yes (Life-Threatening, Other)
  Sender: FDA-Public Use
  Company Number: CA-JAZZ-2021-CA-006156

PATIENT
  Age: 3 Year
  Sex: Male
  Weight: 18 kg

DRUGS (25)
  1. FUROSEMIDE. [Concomitant]
     Active Substance: FUROSEMIDE
  2. VINCRISTINE SULFATE. [Suspect]
     Active Substance: VINCRISTINE SULFATE
     Indication: ACUTE LYMPHOCYTIC LEUKAEMIA
     Dosage: 1.1 MILLIGRAM
     Route: 042
  3. AMLODIPINE [Concomitant]
     Active Substance: AMLODIPINE BESYLATE
  4. DIMENHYDRINATE. [Concomitant]
     Active Substance: DIMENHYDRINATE
     Route: 042
  5. GABAPENTIN. [Concomitant]
     Active Substance: GABAPENTIN
  6. LEVOFLOXACIN. [Concomitant]
     Active Substance: LEVOFLOXACIN
  7. CYTARABINE. [Suspect]
     Active Substance: CYTARABINE
     Indication: ACUTE LYMPHOCYTIC LEUKAEMIA
     Dosage: 40 MILLIGRAM, QD
     Route: 042
  8. ACETAMINOPHEN. [Concomitant]
     Active Substance: ACETAMINOPHEN
  9. PIPERACILLIN/TAZOBACTAM [Concomitant]
     Active Substance: PIPERACILLIN SODIUM\TAZOBACTAM SODIUM
  10. POLYETHYLENE GLYCOL [Concomitant]
     Active Substance: POLYETHYLENE GLYCOLS
  11. LANSOPRAZOLE. [Concomitant]
     Active Substance: LANSOPRAZOLE
  12. ASPARAGINASE [Suspect]
     Active Substance: ASPARAGINASE
     Indication: ACUTE LYMPHOCYTIC LEUKAEMIA
     Dosage: 1825.0 INTERNATIONAL UNIT
     Route: 042
  13. HYDROCORTISONE. [Suspect]
     Active Substance: HYDROCORTISONE
     Indication: ACUTE LYMPHOCYTIC LEUKAEMIA
     Dosage: 15 MILLIGRAM
     Route: 042
  14. ALLOPURINOL. [Concomitant]
     Active Substance: ALLOPURINOL
  15. DEXAMETHASONE. [Concomitant]
     Active Substance: DEXAMETHASONE
  16. RISPERIDONE SANDOZ [Concomitant]
     Active Substance: RISPERIDONE
  17. LACTULOSE. [Concomitant]
     Active Substance: LACTULOSE
  18. NYSTATIN. [Concomitant]
     Active Substance: NYSTATIN
  19. ONDANSETRON [Concomitant]
     Active Substance: ONDANSETRON
  20. METHOTREXATE. [Suspect]
     Active Substance: METHOTREXATE
     Indication: ACUTE LYMPHOCYTIC LEUKAEMIA
     Dosage: 12 MILLIGRAM, QD
     Route: 042
  21. PHYTONADIONE. [Concomitant]
     Active Substance: PHYTONADIONE
  22. RISPERIDONE. [Concomitant]
     Active Substance: RISPERIDONE
  23. VANCOMYCIN [Concomitant]
     Active Substance: VANCOMYCIN
  24. CYTARABINE. [Suspect]
     Active Substance: CYTARABINE
     Dosage: 2 MILLILITER, QD
     Route: 037
  25. CHOLECALCIFEROL [Concomitant]
     Active Substance: CHOLECALCIFEROL

REACTIONS (2)
  - Aplastic anaemia [Recovered/Resolved]
  - Transfusion [Recovered/Resolved]
